FAERS Safety Report 6087689-9 (Version None)
Quarter: 2009Q1

REPORT INFORMATION
  Report Type: 
  Country: None (occurrence: None)
  Receive Date: 20090223
  Receipt Date: 20090209
  Transmission Date: 20090719
  Serious: Yes (Other)
  Sender: FDA-Public Use
  Company Number: JP-ROCHE-608314

PATIENT
  Sex: Female
  Weight: 60 kg

DRUGS (8)
  1. TAMIFLU [Suspect]
     Indication: INFLUENZA
     Dosage: DRUG: TAMIFLU CAPSULE.
     Route: 048
     Dates: start: 20081226, end: 20081230
  2. LINTON [Concomitant]
     Route: 065
  3. NEULEPTIL [Concomitant]
     Route: 048
  4. AKINETON [Concomitant]
     Route: 065
  5. SERENACE [Concomitant]
     Route: 065
  6. AMBROXOL HYDROCHLORIDE [Concomitant]
     Dosage: DRUG: PONOPHEN
     Route: 048
  7. MEDICON [Concomitant]
     Route: 048
  8. CALONAL [Concomitant]
     Dosage: FORM: ORAL FORMULATION (NOT OTHERWISE SPECIFIED).
     Route: 048

REACTIONS (3)
  - ABNORMAL BEHAVIOUR [None]
  - BLOOD CREATINE PHOSPHOKINASE INCREASED [None]
  - HEPATIC FUNCTION ABNORMAL [None]
